FAERS Safety Report 8847957 (Version 1)
Quarter: 2012Q4

REPORT INFORMATION
  Report Type: Report from Study
  Country: IE (occurrence: IE)
  Receive Date: 20121018
  Receipt Date: 20121018
  Transmission Date: 20130627
  Serious: Yes (Hospitalization)
  Sender: FDA-Public Use
  Company Number: IE-ROCHE-641556

PATIENT
  Age: 37 Year
  Sex: Male
  Weight: 49.7 kg

DRUGS (3)
  1. BEVACIZUMAB [Suspect]
     Indication: BREAST CANCER
     Dosage: TREATMENT DELAYED, DOSE GIVEN AT MOST RECENT ADMINISTRATION: 720 MG.LAST DOSE PRIOR SAE:10 JUNE 2009
     Route: 042
  2. DOCETAXEL [Suspect]
     Indication: BREAST CANCER
     Dosage: TREATMNET DELAYED, DOSE GIVEN AT MOST RECENT ADMINISTRATION: 106 MG.LAST DOSE PRIOR SAE:10 JUNE 2009
     Route: 042
  3. CYCLOPHOSPHAMIDE [Suspect]
     Indication: BREAST CANCER
     Dosage: TREATMENT DELAYED, DOSE GIVEN AT MOST RECENT ADMINISTRATION: 852 MG.LAST DOSE PRIOR SAE:10 JUNE 2009
     Route: 042

REACTIONS (3)
  - Localised infection [Recovered/Resolved]
  - Oedema peripheral [Not Recovered/Not Resolved]
  - Pain [Recovered/Resolved]
